FAERS Safety Report 25436161 (Version 1)
Quarter: 2025Q2

REPORT INFORMATION
  Report Type: Spontaneous
  Country: US (occurrence: US)
  Receive Date: 20250614
  Receipt Date: 20250614
  Transmission Date: 20250717
  Serious: No
  Sender: SERVIER
  Company Number: US-SERVIER-S25006319

PATIENT

DRUGS (5)
  1. VORANIGO [Suspect]
     Active Substance: VORASIDENIB
     Indication: Glioma
     Dosage: 40 MG, QD
     Route: 048
     Dates: start: 20220322
  2. VORANIGO [Suspect]
     Active Substance: VORASIDENIB
     Dosage: 40 MG, QD
     Route: 048
     Dates: start: 202410
  3. LAMOTRIGINE [Concomitant]
     Active Substance: LAMOTRIGINE
     Indication: Seizure
     Route: 065
  4. SILDENAFIL [Concomitant]
     Active Substance: SILDENAFIL
     Indication: Poor peripheral circulation
     Route: 065
  5. VITAMINS [Concomitant]
     Active Substance: VITAMINS
     Indication: Product used for unknown indication
     Route: 065

REACTIONS (2)
  - Alanine aminotransferase increased [Recovering/Resolving]
  - Aspartate aminotransferase increased [Recovered/Resolved]

NARRATIVE: CASE EVENT DATE: 20241201
